FAERS Safety Report 9455742 (Version 1)
Quarter: 2013Q3

REPORT INFORMATION
  Report Type: Spontaneous
  Country: IT (occurrence: IT)
  Receive Date: 20130813
  Receipt Date: 20130813
  Transmission Date: 20140515
  Serious: Yes (Hospitalization)
  Sender: FDA-Public Use
  Company Number: IT-BAYER-2013-095611

PATIENT
  Age: 45 Year
  Sex: Female

DRUGS (1)
  1. ACETYLSALICYLIC ACID (} 100 MG) [Suspect]
     Indication: INFLUENZA
     Dosage: 1 DF, PRN
     Route: 048
     Dates: start: 20130801, end: 20130804

REACTIONS (1)
  - Angioedema [Recovering/Resolving]
